FAERS Safety Report 6095055-5 (Version None)
Quarter: 2009Q1

REPORT INFORMATION
  Report Type: 
  Country: None (occurrence: None)
  Receive Date: 20090227
  Receipt Date: 20080201
  Transmission Date: 20090719
  Serious: No
  Sender: FDA-Public Use
  Company Number: A0701993A

PATIENT
  Age: 12 Year
  Sex: Female

DRUGS (2)
  1. LAMICTAL [Suspect]
     Indication: BIPOLAR DISORDER
     Dosage: 25MG TWICE PER DAY
     Route: 048
     Dates: start: 20071220
  2. TRILEPTAL [Concomitant]
     Indication: BIPOLAR DISORDER
     Dosage: 300MG PER DAY
     Route: 048
     Dates: start: 20070226, end: 20071216

REACTIONS (3)
  - BURNING SENSATION MUCOSAL [None]
  - INFLUENZA LIKE ILLNESS [None]
  - PRURITUS [None]
